FAERS Safety Report 6494452-3 (Version None)
Quarter: 2009Q4

REPORT INFORMATION
  Report Type: 
  Country: None (occurrence: None)
  Receive Date: 20091214
  Receipt Date: 20090218
  Transmission Date: 20100525
  Serious: No
  Sender: FDA-Public Use
  Company Number: US-BRISTOL-MYERS SQUIBB COMPANY-14514012

PATIENT
  Sex: Female

DRUGS (4)
  1. ABILIFY [Suspect]
     Indication: ANTIDEPRESSANT THERAPY
     Dates: start: 20090201
  2. PAXIL [Concomitant]
  3. TEGRETOL [Concomitant]
  4. CELEBREX [Concomitant]

REACTIONS (1)
  - ARTHRALGIA [None]
